FAERS Safety Report 5572211-3 (Version None)
Quarter: 2007Q4

REPORT INFORMATION
  Report Type: 
  Country: None (occurrence: None)
  Receive Date: 20071221
  Receipt Date: 20071211
  Transmission Date: 20080405
  Serious: Yes (Other)
  Sender: FDA-Public Use
  Company Number: US-PFIZER INC-2007104989

PATIENT
  Sex: Male
  Weight: 86.363 kg

DRUGS (4)
  1. DILANTIN [Suspect]
     Indication: CONVULSION
  2. ZARONTIN [Suspect]
     Indication: CONVULSION
  3. TEGRETOL [Suspect]
     Indication: CONVULSION
  4. PHENOBARBITAL TAB [Suspect]
     Indication: CONVULSION

REACTIONS (5)
  - CONVULSION [None]
  - FEELING ABNORMAL [None]
  - HYPOAESTHESIA [None]
  - MALAISE [None]
  - PAIN [None]
